FAERS Safety Report 9751474 (Version 1)
Quarter: 2013Q4

REPORT INFORMATION
  Report Type: Other
  Country: US (occurrence: US)
  Receive Date: 20131212
  Receipt Date: 20131212
  Transmission Date: 20140711
  Serious: Yes (Other)
  Sender: FDA-Public Use
  Company Number: US-RB-061550-13

PATIENT
  Sex: 0

DRUGS (1)
  1. BUPRENORPHINE/NALOXONE UNSPECIFIED [Suspect]
     Indication: PRODUCT USED FOR UNKNOWN INDICATION
     Dosage: DOSE BETWEEN 2-24 MG; 2-WEEK DETOXIFICATION OR 12 WEEKS OF TREATMENT WITH LAST 3 WEEKS TAPER
     Route: 065

REACTIONS (2)
  - Hepatic enzyme increased [Unknown]
  - Hepatitis C [Unknown]
